FAERS Safety Report 7368561-0 (Version None)
Quarter: 2011Q1

REPORT INFORMATION
  Report Type: 
  Country: None (occurrence: None)
  Receive Date: 20110304
  Receipt Date: 20110217
  Transmission Date: 20110831
  Serious: Yes (Hospitalization)
  Sender: FDA-Public Use
  Company Number: 2011SP007474

PATIENT
  Age: 46 Year
  Sex: Male

DRUGS (6)
  1. PEGASYS [Suspect]
     Indication: HEPATITIS C
     Dosage: 90 MCG; QQ; SC
     Route: 058
     Dates: start: 20101230
  2. GRANULOKIN [Concomitant]
  3. NEXIUM [Concomitant]
  4. REBETOL [Suspect]
     Indication: HEPATITIS C
     Dosage: 1200 MG; QD; PO
     Route: 048
     Dates: start: 20101125
  5. ATENOLOL [Concomitant]
  6. NORMIX [Concomitant]

REACTIONS (1)
  - PORTAL VEIN THROMBOSIS [None]
